FAERS Safety Report 9204019 (Version 1)
Quarter: 2013Q1

REPORT INFORMATION
  Report Type: Spontaneous
  Country: US (occurrence: None)
  Receive Date: 20120709
  Receipt Date: 20120709
  Transmission Date: 20140127
  Serious: Yes (Other)
  Sender: FDA-Public Use
  Company Number: PHEH2011US02352

PATIENT
  Age: 75 Year
  Sex: Female

DRUGS (2)
  1. GLEEVEC [Suspect]
     Indication: CHRONIC MYELOID LEUKAEMIA
     Route: 048
     Dates: start: 20110720
  2. HYDROCHLOROTHIAZIDE [Suspect]

REACTIONS (9)
  - Stevens-Johnson syndrome [None]
  - Photosensitivity reaction [None]
  - Exfoliative rash [None]
  - Pruritus [None]
  - Skin burning sensation [None]
  - Blister [None]
  - Alopecia [None]
  - Dry skin [None]
  - Seborrhoeic dermatitis [None]
